FAERS Safety Report 10401443 (Version 2)
Quarter: 2014Q3

REPORT INFORMATION
  Report Type: Spontaneous
  Country: CA (occurrence: None)
  Receive Date: 20140819
  Receipt Date: 20140916
  Transmission Date: 20150326
  Serious: Yes (Hospitalization)
  Sender: FDA-Public Use
  Company Number: CA-016723

PATIENT
  Age: 77 Year
  Sex: Male

DRUGS (14)
  1. HYDROCHLOROTHIAZIDE. [Concomitant]
     Active Substance: HYDROCHLOROTHIAZIDE
  2. ALLOPURINOL. [Concomitant]
     Active Substance: ALLOPURINOL
  3. EZETROL [Concomitant]
     Active Substance: EZETIMIBE
  4. ASA [Concomitant]
     Active Substance: ASPIRIN
  5. FIRMAGON [Suspect]
     Active Substance: DEGARELIX ACETATE
     Indication: PROSTATE CANCER
     Dosage: 80 MG, 1X/MONTH SUBCUTANEOUS
     Route: 058
     Dates: start: 20140509
  6. METFORMIN [Concomitant]
     Active Substance: METFORMIN HYDROCHLORIDE
  7. AMLODIPINE [Concomitant]
     Active Substance: AMLODIPINE BESYLATE
  8. TAMARIND SEED POLYSACCHARIDE [Concomitant]
  9. IRBESARTAN. [Concomitant]
     Active Substance: IRBESARTAN
  10. LEVOTHYROXINE [Concomitant]
     Active Substance: LEVOTHYROXINE
  11. LIPITOR [Concomitant]
     Active Substance: ATORVASTATIN CALCIUM
  12. MVI [Concomitant]
     Active Substance: VITAMINS
  13. COLDEX /00020001/ [Concomitant]
  14. IRON SULFATE [Concomitant]
     Active Substance: FERROUS SULFATE ANHYDROUS

REACTIONS (3)
  - Dehydration [None]
  - Investigation [None]
  - Hypotension [None]

NARRATIVE: CASE EVENT DATE: 20140806
